FAERS Safety Report 22126268 (Version 1)
Quarter: 2023Q1

REPORT INFORMATION
  Report Type: Spontaneous
  Country: CN (occurrence: CN)
  Receive Date: 20230322
  Receipt Date: 20230322
  Transmission Date: 20230417
  Serious: Yes (Other)
  Sender: FDA-Public Use
  Company Number: CN-BRACCO-2023CN01220

PATIENT
  Age: 59 Year
  Sex: Female

DRUGS (1)
  1. GADOBENATE DIMEGLUMINE [Suspect]
     Active Substance: GADOBENATE DIMEGLUMINE
     Indication: Magnetic resonance imaging
     Dosage: 15 ML, SINGLE
     Route: 042
     Dates: start: 20230228, end: 20230228

REACTIONS (3)
  - Quadriparesis [Recovering/Resolving]
  - Cough [Recovering/Resolving]
  - Laryngeal discomfort [Recovering/Resolving]

NARRATIVE: CASE EVENT DATE: 20230228
